FAERS Safety Report 25082365 (Version 1)
Quarter: 2025Q1

REPORT INFORMATION
  Report Type: Report from Study
  Country: GB (occurrence: GB)
  Receive Date: 20250317
  Receipt Date: 20250317
  Transmission Date: 20250409
  Serious: Yes (Other)
  Sender: UCB
  Company Number: GB-UCBSA-2024063673

PATIENT
  Sex: Female

DRUGS (1)
  1. BIMEKIZUMAB [Suspect]
     Active Substance: BIMEKIZUMAB
     Indication: Psoriasis
     Dosage: 320 MILLIGRAM, EV 4 WEEKS
     Route: 058
     Dates: start: 202408

REACTIONS (6)
  - Lower respiratory tract infection [Unknown]
  - Oropharyngeal pain [Unknown]
  - Injection site pain [Unknown]
  - Mood altered [Unknown]
  - Eye infection [Unknown]
  - Rash [Unknown]

NARRATIVE: CASE EVENT DATE: 20250101
